FAERS Safety Report 7528294-4 (Version None)
Quarter: 2011Q2

REPORT INFORMATION
  Report Type: 
  Country: None (occurrence: None)
  Receive Date: 20110607
  Receipt Date: 20110118
  Transmission Date: 20111010
  Serious: No
  Sender: FDA-Public Use
  Company Number: US-ASTRAZENECA-2011SE03162

PATIENT
  Age: 11 Year
  Sex: Male

DRUGS (1)
  1. PRILOSEC [Suspect]
     Indication: EOSINOPHILIC OESOPHAGITIS
     Route: 048
     Dates: start: 20101201

REACTIONS (2)
  - WRONG TECHNIQUE IN DRUG USAGE PROCESS [None]
  - VOMITING [None]
